FAERS Safety Report 4655237-3 (Version None)
Quarter: 2005Q2

REPORT INFORMATION
  Report Type: 
  Country: None (occurrence: None)
  Receive Date: 20050506
  Receipt Date: 20050322
  Transmission Date: 20051028
  Serious: Yes (Other)
  Sender: FDA-Public Use
  Company Number: CH-GLAXOSMITHKLINE-B0379693A

PATIENT
  Age: 38 Year
  Sex: Female
  Weight: 64 kg

DRUGS (3)
  1. 3TC [Suspect]
     Indication: HIV INFECTION
     Dosage: 300MG PER DAY
     Route: 048
     Dates: start: 20050127, end: 20050228
  2. VIRAMUNE [Concomitant]
     Indication: HIV INFECTION
     Dosage: 200MG SEE DOSAGE TEXT
     Route: 048
     Dates: start: 20050127, end: 20050228
  3. VIREAD [Concomitant]
     Indication: HIV INFECTION
     Dosage: 136MG PER DAY
     Route: 048
     Dates: start: 20050127, end: 20050228

REACTIONS (4)
  - DRUG EXPOSURE DURING PREGNANCY [None]
  - HEPATIC ENZYME INCREASED [None]
  - INFLUENZA [None]
  - JAUNDICE [None]
